FAERS Safety Report 20667695 (Version 3)
Quarter: 2022Q2

REPORT INFORMATION
  Report Type: Spontaneous
  Country: JP (occurrence: JP)
  Receive Date: 20220404
  Receipt Date: 20220629
  Transmission Date: 20220720
  Serious: Yes (Death, Other)
  Sender: FDA-Public Use
  Company Number: JP-CHUGAI-2022010621

PATIENT
  Age: 76 Year
  Sex: Male
  Weight: 58.5 kg

DRUGS (8)
  1. TECENTRIQ [Suspect]
     Active Substance: ATEZOLIZUMAB
     Indication: Hepatocellular carcinoma
     Dosage: 1200 MILLIGRAM, ONCE/3WEEKS
     Route: 041
     Dates: start: 20211015, end: 20211126
  2. AVASTIN [Suspect]
     Active Substance: BEVACIZUMAB
     Indication: Hepatocellular carcinoma
     Dosage: 1000 MILLIGRAM, ONCE/3WEEKS
     Route: 041
     Dates: start: 20211015, end: 20211126
  3. FAMOTIDINE [Concomitant]
     Active Substance: FAMOTIDINE
     Route: 065
  4. CANDESARTAN [Concomitant]
     Active Substance: CANDESARTAN
     Route: 065
  5. TAMSULOSIN HYDROCHLORIDE [Concomitant]
     Active Substance: TAMSULOSIN HYDROCHLORIDE
     Route: 065
  6. BISOPROLOL FUMARATE [Concomitant]
     Active Substance: BISOPROLOL FUMARATE
     Route: 065
  7. DUTASTERIDE [Concomitant]
     Active Substance: DUTASTERIDE
     Route: 048
  8. BUFFERIN [ACETYLSALICYLIC ACID] [Concomitant]
     Dosage: UNK
     Route: 065

REACTIONS (2)
  - Interstitial lung disease [Fatal]
  - Hepatic encephalopathy [Recovering/Resolving]

NARRATIVE: CASE EVENT DATE: 20211217
